FAERS Safety Report 8767428 (Version 2)
Quarter: 2012Q4

REPORT INFORMATION
  Report Type: 
  Country: IT (occurrence: JP)
  Receive Date: 20120903
  Receipt Date: 20120903
  Transmission Date: 20130627
  Serious: Yes (Death, Disabling, Other)
  Sender: FDA-Public Use
  Company Number: JP-BAYER-200811841BYL

PATIENT
  Age: 78 Year
  Sex: Male
  Weight: 60 kg

DRUGS (23)
  1. MAGNEVIST [Suspect]
     Indication: METASTASES TO LYMPH NODES
     Route: 042
     Dates: start: 20080729, end: 20080729
  2. MAGNEVIST [Suspect]
     Indication: NUCLEAR MAGNETIC RESONANCE IMAGING
  3. GADOTERIDOL [Suspect]
     Indication: NUCLEAR MAGNETIC RESONANCE IMAGING BRAIN
     Dosage: 26 ml, ONCE
     Route: 042
     Dates: start: 20080717, end: 20080717
  4. GADOTERIDOL [Suspect]
     Indication: METASTASES TO CENTRAL NERVOUS SYSTEM
  5. DIGOXIN [DIGOXIN] [Concomitant]
     Indication: ARRHYTHMIA
     Dosage: 0.125 mg, QD
     Route: 048
     Dates: start: 200806, end: 20080729
  6. WARFARIN [Concomitant]
     Indication: ARRHYTHMIA
     Dosage: 2 mg, QD
     Route: 048
     Dates: start: 200806, end: 20080729
  7. CELESTAMINE [Concomitant]
     Dosage: 2 DF, BID
     Route: 048
     Dates: start: 200806, end: 20080729
  8. SELBEX [Concomitant]
     Dosage: 150 mg, TID
     Route: 048
     Dates: start: 200806, end: 20080729
  9. FLOMOX [Concomitant]
     Dosage: UNK
     Route: 048
     Dates: start: 20080709, end: 20080729
  10. LOXONIN [Concomitant]
     Dosage: UNK
     Route: 048
     Dates: start: 20080709, end: 20080729
  11. STRONG NEO-MINOPHAGEN C [Concomitant]
     Indication: ERYTHEMA MULTIFORME
     Dosage: UNK
     Route: 042
     Dates: start: 20080709, end: 20080728
  12. NEUROTROPIN [ORGAN LYSATE, STANDARDIZED] [Concomitant]
     Indication: ERYTHEMA MULTIFORME
     Dosage: UNK
     Route: 065
     Dates: start: 20080709, end: 20080728
  13. ANTEBATE [Concomitant]
     Route: 061
  14. ZEFNART [Concomitant]
     Indication: ERYTHEMA MULTIFORME
     Route: 061
  15. SG [APRONAL,CAFFEINE,PARACETAMOL,PROPYPHENAZONE] [Concomitant]
     Indication: ERYTHEMA MULTIFORME
     Route: 048
  16. ALLELOCK [Concomitant]
     Dosage: UNK
     Dates: start: 20080712, end: 20080729
  17. LENDORMIN [Concomitant]
     Dosage: UNK
     Dates: start: 20080715, end: 20080812
  18. ATARAX-P [Concomitant]
     Dosage: UNK
     Dates: start: 20080716, end: 20080812
  19. ADALAT CR [Concomitant]
     Dosage: UNK
     Dates: start: 20080801, end: 20080812
  20. OMEPRAL [Concomitant]
     Dosage: UNK
     Dates: start: 20080802, end: 20080816
  21. LASIX [Concomitant]
     Dosage: UNK
     Dates: start: 20080730
  22. UNASYN [Concomitant]
     Dosage: UNK
     Dates: start: 20080802, end: 20080806
  23. METFORMIN HYDROCHLORIDE [Concomitant]

REACTIONS (9)
  - Nephrogenic systemic fibrosis [Unknown]
  - Joint range of motion decreased [Unknown]
  - Gait disturbance [Unknown]
  - Sclerema [Unknown]
  - Skin induration [Unknown]
  - Pigmentation disorder [Unknown]
  - Ecchymosis [Unknown]
  - Renal failure [Unknown]
  - Blood creatinine increased [Unknown]
